FAERS Safety Report 18156959 (Version 1)
Quarter: 2020Q3

REPORT INFORMATION
  Report Type: Spontaneous
  Country: AF (occurrence: AF)
  Receive Date: 20200817
  Receipt Date: 20200817
  Transmission Date: 20201103
  Serious: Yes (Other)
  Sender: FDA-Public Use
  Company Number: None

PATIENT
  Age: 42 Year
  Sex: Male

DRUGS (7)
  1. OMEPRAZOLE. [Concomitant]
     Active Substance: OMEPRAZOLE
  2. AMBRISENTAN [Suspect]
     Active Substance: AMBRISENTAN
     Indication: PULMONARY ARTERIAL HYPERTENSION
     Route: 048
  3. ADCIRCA [Suspect]
     Active Substance: TADALAFIL
  4. XANAX [Concomitant]
     Active Substance: ALPRAZOLAM
  5. INVEGA [Concomitant]
     Active Substance: PALIPERIDONE
  6. UPTRAVI [Concomitant]
     Active Substance: SELEXIPAG
  7. ONDANSETRON [Concomitant]
     Active Substance: ONDANSETRON

REACTIONS (2)
  - Dyspnoea [None]
  - Product distribution issue [None]

NARRATIVE: CASE EVENT DATE: 20200817
